FAERS Safety Report 25182480 (Version 2)
Quarter: 2025Q2

REPORT INFORMATION
  Report Type: Spontaneous
  Country: US (occurrence: US)
  Receive Date: 20250410
  Receipt Date: 20250411
  Transmission Date: 20250716
  Serious: No
  Sender: KINIKSA PHARMACEUTICALS
  Company Number: US-Kiniksa Pharmaceuticals Ltd.-2025KPU000501

PATIENT
  Age: 67 Year
  Sex: Female

DRUGS (2)
  1. ARCALYST [Suspect]
     Active Substance: RILONACEPT
     Indication: Product used for unknown indication
     Route: 058
     Dates: start: 20240304, end: 20240304
  2. ARCALYST [Suspect]
     Active Substance: RILONACEPT
     Route: 058
     Dates: start: 202403

REACTIONS (6)
  - Dyspnoea [Unknown]
  - Chest pain [Unknown]
  - Product dose omission issue [Not Recovered/Not Resolved]
  - Product supply issue [Not Recovered/Not Resolved]
  - Asthma [Unknown]
  - Therapeutic response decreased [Unknown]

NARRATIVE: CASE EVENT DATE: 20250201
